FAERS Safety Report 5220928-2 (Version None)
Quarter: 2007Q1

REPORT INFORMATION
  Report Type: 
  Country: None (occurrence: None)
  Receive Date: 20070125
  Receipt Date: 20070125
  Transmission Date: 20070707
  Serious: Yes (Other)
  Sender: FDA-Public Use
  Company Number: None

PATIENT
  Age: 56 Year
  Sex: Male
  Weight: 88.4514 kg

DRUGS (1)
  1. BUDEPRION XL 300 MG/TAB TEVA PHARMACE [Suspect]
     Indication: BIPOLAR DISORDER
     Dosage: ONE TABLET DAILY PO
     Route: 048
     Dates: start: 20061230, end: 20061230

REACTIONS (3)
  - HEART RATE IRREGULAR [None]
  - PHARMACEUTICAL PRODUCT COMPLAINT [None]
  - SENSATION OF PRESSURE [None]
